FAERS Safety Report 5063799-X (Version None)
Quarter: 2006Q3

REPORT INFORMATION
  Report Type: 
  Country: None (occurrence: None)
  Receive Date: 20060703
  Receipt Date: 20060417
  Transmission Date: 20061208
  Serious: No
  Sender: FDA-Public Use
  Company Number: 2006S1003558

PATIENT
  Age: 43 Year
  Sex: Female
  Weight: 63.5036 kg

DRUGS (4)
  1. CLOZAPINE [Suspect]
     Indication: SCHIZOAFFECTIVE DISORDER
     Dosage: 350 MG;BID;PO
     Route: 048
     Dates: start: 20050801, end: 20060417
  2. RISPERIDONE [Concomitant]
  3. BENZTROPINE MESYLATE [Concomitant]
  4. OXCARBAZEPINE [Concomitant]

REACTIONS (2)
  - GRANULOCYTOPENIA [None]
  - LEUKOPENIA [None]
